FAERS Safety Report 9348274 (Version 1)
Quarter: 2013Q2

REPORT INFORMATION
  Report Type: Report from Study
  Country: CH (occurrence: CH)
  Receive Date: 20130614
  Receipt Date: 20130614
  Transmission Date: 20140414
  Serious: Yes (Life-Threatening, Hospitalization)
  Sender: FDA-Public Use
  Company Number: CH-ELI_LILLY_AND_COMPANY-CH201306003099

PATIENT
  Age: 43 Year
  Sex: Female

DRUGS (2)
  1. PEMETREXED [Suspect]
     Indication: NEOPLASM MALIGNANT
     Dosage: 820 MG, UNK
     Route: 042
     Dates: start: 20130516
  2. CISPLATIN [Suspect]
     Indication: NEOPLASM MALIGNANT
     Dosage: 120 MG, UNK
     Route: 042
     Dates: start: 20130516

REACTIONS (1)
  - Embolism [Unknown]
